FAERS Safety Report 6383671-2 (Version None)
Quarter: 2009Q4

REPORT INFORMATION
  Report Type: 
  Country: None (occurrence: None)
  Receive Date: 20091001
  Receipt Date: 20090925
  Transmission Date: 20100525
  Serious: Yes (Other)
  Sender: FDA-Public Use
  Company Number: US-JNJFOC-20090908236

PATIENT
  Sex: Male
  Weight: 102.06 kg

DRUGS (13)
  1. DURAGESIC-100 [Suspect]
     Indication: NECK PAIN
     Route: 062
  2. FENTANYL TRANSDERMAL SYSTEM [Suspect]
     Route: 062
  3. FENTANYL TRANSDERMAL SYSTEM [Suspect]
     Indication: NECK PAIN
     Route: 062
  4. DURAGESIC-100 [Suspect]
     Route: 062
  5. DURAGESIC-100 [Suspect]
     Route: 062
  6. KLONOPIN [Concomitant]
     Indication: ANXIETY
     Route: 048
  7. ZANAFLEX [Concomitant]
     Indication: MUSCLE SPASMS
     Route: 048
  8. TRILEPTAL [Concomitant]
     Indication: NEURALGIA
     Dosage: 1/2 TABLET
     Route: 048
  9. ROXICODONE [Concomitant]
     Indication: BREAKTHROUGH PAIN
     Route: 048
  10. NORVASC [Concomitant]
     Indication: BLOOD PRESSURE
     Dosage: ONE AND ONE HALF DAILY
     Route: 048
  11. ATENOLOL [Concomitant]
     Indication: BLOOD PRESSURE
     Route: 048
  12. TERAZOSIN HCL [Concomitant]
     Indication: BLOOD PRESSURE
     Route: 048
  13. LEXAPRO [Concomitant]
     Indication: INSOMNIA
     Route: 048

REACTIONS (9)
  - ARTHRALGIA [None]
  - BLOOD SODIUM DECREASED [None]
  - CARTILAGE INJURY [None]
  - MUSCLE ATROPHY [None]
  - PATELLA FRACTURE [None]
  - ROAD TRAFFIC ACCIDENT [None]
  - SKIN STRIAE [None]
  - WEIGHT DECREASED [None]
  - WRONG TECHNIQUE IN DRUG USAGE PROCESS [None]
